FAERS Safety Report 10331706 (Version 1)
Quarter: 2014Q3

REPORT INFORMATION
  Report Type: Spontaneous
  Country: SE (occurrence: SE)
  Receive Date: 20140722
  Receipt Date: 20140722
  Transmission Date: 20150326
  Serious: Yes (Death)
  Sender: FDA-Public Use
  Company Number: SE-ROCHE-1437964

PATIENT
  Age: 30 Year
  Sex: Male

DRUGS (5)
  1. XELODA [Suspect]
     Active Substance: CAPECITABINE
     Indication: PRODUCT USED FOR UNKNOWN INDICATION
     Dosage: 2+0+2
     Route: 048
     Dates: start: 20140213, end: 20140227
  2. GLUCOSE ANHYDROUS [Concomitant]
     Route: 042
     Dates: start: 20140213
  3. ONDANSETRON [Concomitant]
     Active Substance: ONDANSETRON
     Route: 042
     Dates: start: 20140213
  4. BETAPRED [Concomitant]
     Active Substance: BETAMETHASONE SODIUM PHOSPHATE
     Route: 042
     Dates: start: 20140213
  5. OXALIPLATIN. [Suspect]
     Active Substance: OXALIPLATIN
     Indication: PRODUCT USED FOR UNKNOWN INDICATION
     Dosage: 52 ML/260 MG
     Route: 065
     Dates: start: 20140213, end: 20140213

REACTIONS (1)
  - Cardiac arrest [Fatal]

NARRATIVE: CASE EVENT DATE: 20140305
